FAERS Safety Report 23181191 (Version 1)
Quarter: 2023Q4

REPORT INFORMATION
  Report Type: Report from Study
  Country: US (occurrence: US)
  Receive Date: 20231114
  Receipt Date: 20231114
  Transmission Date: 20240110
  Serious: Yes (Other)
  Sender: FDA-Public Use
  Company Number: US-ARGENX-2022-ARGX-US002247

PATIENT

DRUGS (1)
  1. VYVGART [Suspect]
     Active Substance: EFGARTIGIMOD ALFA-FCAB
     Indication: Myasthenia gravis
     Dosage: 10 MG/KG
     Route: 042
     Dates: start: 20221025

REACTIONS (5)
  - Bladder cancer recurrent [Unknown]
  - Hyperhidrosis [Unknown]
  - Diarrhoea [Unknown]
  - Neoplasm [Unknown]
  - Cystitis [Unknown]
